FAERS Safety Report 4488001-9 (Version None)
Quarter: 2004Q4

REPORT INFORMATION
  Report Type: 
  Country: None (occurrence: None)
  Receive Date: 20041028
  Receipt Date: 20041018
  Transmission Date: 20050328
  Serious: Yes (Hospitalization)
  Sender: FDA-Public Use
  Company Number: US-MERCK-0410USA02631

PATIENT
  Sex: Male

DRUGS (2)
  1. VIOXX [Suspect]
     Indication: FIBROMYALGIA
     Route: 048
     Dates: start: 20011101, end: 20040930
  2. FLEXERIL [Concomitant]
     Route: 065

REACTIONS (2)
  - CHEST PAIN [None]
  - HEART RATE IRREGULAR [None]
